FAERS Safety Report 7329467-6 (Version None)
Quarter: 2011Q1

REPORT INFORMATION
  Report Type: 
  Country: None (occurrence: None)
  Receive Date: 20110303
  Receipt Date: 20110222
  Transmission Date: 20110831
  Serious: Yes (Hospitalization)
  Sender: FDA-Public Use
  Company Number: US-ASTRAZENECA-2011SE10162

PATIENT
  Age: 56 Year
  Sex: Female

DRUGS (2)
  1. CRESTOR [Suspect]
     Route: 048
  2. NEXIUM [Suspect]
     Route: 048

REACTIONS (5)
  - SURGERY [None]
  - MALAISE [None]
  - DISTRACTIBILITY [None]
  - STRESS [None]
  - POST-TRAUMATIC STRESS DISORDER [None]
